FAERS Safety Report 5201286-6 (Version None)
Quarter: 2007Q1

REPORT INFORMATION
  Report Type: 
  Country: None (occurrence: None)
  Receive Date: 20070108
  Receipt Date: 20061229
  Transmission Date: 20070707
  Serious: Yes (Hospitalization)
  Sender: FDA-Public Use
  Company Number: US-BAXTER-2007BH000016

PATIENT
  Age: 4 Year
  Sex: Male
  Weight: 16 kg

DRUGS (2)
  1. GAMMAGARD S/D [Suspect]
     Indication: KAWASAKI'S DISEASE
     Route: 042
     Dates: start: 20061220, end: 20061220
  2. ASPIRIN [Concomitant]
     Indication: KAWASAKI'S DISEASE
     Route: 048
     Dates: start: 20061220, end: 20061223

REACTIONS (1)
  - BLOOD PRESSURE DECREASED [None]
